FAERS Safety Report 4286924-7 (Version None)
Quarter: 2004Q1

REPORT INFORMATION
  Report Type: 
  Country: None (occurrence: None)
  Receive Date: 20040204
  Receipt Date: 20040121
  Transmission Date: 20041129
  Serious: Yes (Other)
  Sender: FDA-Public Use
  Company Number: US-JNJFOC-20040104273

PATIENT
  Age: 74 Year
  Sex: Female
  Weight: 66.2252 kg

DRUGS (6)
  1. INFLIXIMAB (INFLIXIMAB, RECOMBINANT) LYOPHILIZED POWDER [Suspect]
     Indication: RHEUMATOID ARTHRITIS
     Dosage: 2 VIALS EVERY 8 WEEKS
     Dates: start: 20020607
  2. SYNTHROID [Concomitant]
  3. LISINOPRIL [Concomitant]
  4. FOLIC ACID [Concomitant]
  5. PREMARIN [Concomitant]
  6. METHOTREXATE [Concomitant]

REACTIONS (1)
  - VENOUS STASIS [None]
